FAERS Safety Report 5880038-8 (Version None)
Quarter: 2008Q3

REPORT INFORMATION
  Report Type: 
  Country: None (occurrence: None)
  Receive Date: 20080912
  Receipt Date: 20080904
  Transmission Date: 20090109
  Serious: Yes (Death, Hospitalization, Other)
  Sender: FDA-Public Use
  Company Number: US-AMGEN-STX293513

PATIENT
  Sex: Female
  Weight: 106.2 kg

DRUGS (24)
  1. ENBREL [Suspect]
     Indication: PSORIATIC ARTHROPATHY
     Route: 058
  2. METHOTREXATE [Concomitant]
     Route: 048
  3. PAXIL [Concomitant]
     Route: 048
  4. SINGULAIR [Concomitant]
     Route: 048
  5. ATIVAN [Concomitant]
     Route: 048
  6. TERCONAZOLE [Concomitant]
     Route: 067
  7. DICLOFENAC SODIUM [Concomitant]
     Route: 048
  8. CITRACAL [Concomitant]
     Route: 048
  9. ARTANE [Concomitant]
     Route: 048
  10. TRILAFON [Concomitant]
     Route: 048
  11. AMBIEN [Concomitant]
     Route: 048
  12. TRIMETHOPRIM [Concomitant]
     Route: 048
  13. ALBUTEROL [Concomitant]
     Route: 055
  14. COZAAR [Concomitant]
     Route: 048
  15. IMITREX [Concomitant]
     Route: 058
  16. INSULIN LISPRO [Concomitant]
     Route: 058
  17. ACTONEL [Concomitant]
     Route: 048
  18. LYRICA [Concomitant]
     Route: 065
  19. DEPAKOTE [Concomitant]
     Route: 048
  20. VERAPAMIL [Concomitant]
     Route: 048
  21. ULTRAM [Concomitant]
     Route: 048
  22. PHENERGAN HCL [Concomitant]
     Route: 048
  23. ADVAIR DISKUS 100/50 [Concomitant]
     Route: 055
  24. CLONAZEPAM [Concomitant]
     Route: 048

REACTIONS (19)
  - ASTHMA [None]
  - BRAIN HERNIATION [None]
  - CEREBRAL HAEMORRHAGE [None]
  - CYSTITIS [None]
  - DIABETIC NEUROPATHY [None]
  - DYSPNOEA [None]
  - ESSENTIAL HYPERTENSION [None]
  - FALL [None]
  - GALACTOCELE [None]
  - HYPERLIPIDAEMIA [None]
  - HYPOAESTHESIA [None]
  - MIGRAINE [None]
  - OSTEOPENIA [None]
  - PARAESTHESIA [None]
  - POLLAKIURIA [None]
  - RETINOPATHY [None]
  - SJOGREN'S SYNDROME [None]
  - SUBDURAL HAEMATOMA [None]
  - TRAUMATIC BRAIN INJURY [None]
